FAERS Safety Report 15195779 (Version 2)
Quarter: 2019Q2

REPORT INFORMATION
  Report Type: Spontaneous
  Country: US (occurrence: US)
  Receive Date: 20180725
  Receipt Date: 20190516
  Transmission Date: 20190711
  Serious: Yes (Hospitalization)
  Sender: FDA-Public Use
  Company Number: US-PFIZER INC-2018292020

PATIENT
  Age: 40 Year
  Sex: Female
  Weight: 108.84 kg

DRUGS (3)
  1. LYRICA [Suspect]
     Active Substance: PREGABALIN
     Indication: ARTHRALGIA
     Dosage: 300 MG, 1X/DAY (BEFORE BED)
     Dates: start: 2017
  2. LYRICA [Suspect]
     Active Substance: PREGABALIN
     Indication: PSORIATIC ARTHROPATHY
     Dosage: 150 MG, 2X/DAY
     Dates: start: 2012, end: 20180714
  3. COSENTYX [Concomitant]
     Active Substance: SECUKINUMAB
     Dosage: 300 MG, UNK(300 MG SHOTS)

REACTIONS (12)
  - Feeling hot [Unknown]
  - Muscle twitching [Not Recovered/Not Resolved]
  - Malaise [Unknown]
  - Headache [Unknown]
  - Feeling abnormal [Unknown]
  - Hot flush [Unknown]
  - Drug ineffective for unapproved indication [Not Recovered/Not Resolved]
  - Pruritus [Unknown]
  - Memory impairment [Unknown]
  - Insomnia [Unknown]
  - Asthenia [Unknown]
  - Withdrawal syndrome [Not Recovered/Not Resolved]

NARRATIVE: CASE EVENT DATE: 2012
